FAERS Safety Report 4861345-4 (Version None)
Quarter: 2005Q4

REPORT INFORMATION
  Report Type: 
  Country: None (occurrence: None)
  Receive Date: 20051216
  Receipt Date: 20051209
  Transmission Date: 20060501
  Serious: Yes (Life-Threatening)
  Sender: FDA-Public Use
  Company Number: J081-002-002128

PATIENT
  Age: 73 Year
  Sex: Male
  Weight: 50 kg

DRUGS (6)
  1. ARICEPT [Suspect]
     Indication: DEMENTIA ALZHEIMER'S TYPE
     Dosage: ORAL
     Route: 048
     Dates: start: 20040812, end: 20051130
  2. GASRICK D (FAMOTIDINE) [Suspect]
     Indication: GASTRITIS
     Dosage: 20 MG, 1 IN 1 D, ORAL
     Route: 048
     Dates: start: 20041115, end: 20051130
  3. CORINAEL L (NIFEDIPINE) [Concomitant]
  4. HERBESSER R (DILTIAZEM) [Concomitant]
  5. PRECIPITATED CALCIUM CARBONATE (CALCIUM CARBONATE) [Concomitant]
  6. ZYRTEC [Suspect]
     Indication: PRURITUS
     Dosage: 10 MG, 1 IN 1 D, ORAL
     Route: 048
     Dates: start: 20050106, end: 20051130

REACTIONS (4)
  - BLOOD POTASSIUM INCREASED [None]
  - BRADYCARDIA [None]
  - DIALYSIS [None]
  - SICK SINUS SYNDROME [None]
